FAERS Safety Report 19254115 (Version 1)
Quarter: 2021Q2

REPORT INFORMATION
  Report Type: Spontaneous
  Country: DE (occurrence: PL)
  Receive Date: 20210513
  Receipt Date: 20210513
  Transmission Date: 20210717
  Serious: Yes (Other)
  Sender: FDA-Public Use
  Company Number: PL-ELI_LILLY_AND_COMPANY-PL202105003115

PATIENT
  Age: 69 Year
  Sex: Female
  Weight: 48 kg

DRUGS (3)
  1. FLUOROURACIL MEDAC [Suspect]
     Active Substance: FLUOROURACIL
     Indication: COLON CANCER
     Dosage: 1692 MG, UNK
     Route: 042
     Dates: start: 20180823
  2. ERBITUX [Suspect]
     Active Substance: CETUXIMAB
     Indication: COLON CANCER
     Dosage: 700 MG, UNK
     Route: 042
     Dates: start: 20180823
  3. CAMPTO [Suspect]
     Active Substance: IRINOTECAN
     Indication: COLON CANCER
     Dosage: 250 MG, UNK
     Route: 042
     Dates: start: 20180823

REACTIONS (3)
  - Asthenia [Recovering/Resolving]
  - Neutropenia [Recovering/Resolving]
  - Alopecia [Recovering/Resolving]

NARRATIVE: CASE EVENT DATE: 20181109
